FAERS Safety Report 7521597-9 (Version None)
Quarter: 2011Q2

REPORT INFORMATION
  Report Type: 
  Country: None (occurrence: None)
  Receive Date: 20110603
  Receipt Date: 20110601
  Transmission Date: 20111010
  Serious: No
  Sender: FDA-Public Use
  Company Number: US-PFIZER INC-2011119289

PATIENT
  Sex: Female
  Weight: 51.701 kg

DRUGS (1)
  1. LYRICA [Suspect]
     Indication: NECK PAIN
     Dosage: UNK
     Route: 048
     Dates: start: 20110301, end: 20110528

REACTIONS (4)
  - NAUSEA [None]
  - VOMITING [None]
  - DIARRHOEA [None]
  - DECREASED APPETITE [None]
